FAERS Safety Report 19409151 (Version 1)
Quarter: 2021Q2

REPORT INFORMATION
  Report Type: Spontaneous
  Country: US (occurrence: US)
  Receive Date: 20210614
  Receipt Date: 20210614
  Transmission Date: 20210717
  Serious: No
  Sender: FDA-Public Use
  Company Number: US-GLAXOSMITHKLINE-USCH2021035526

PATIENT
  Sex: Male

DRUGS (2)
  1. ADVIL DUAL ACTION WITH ACETAMINOPHEN [Suspect]
     Active Substance: ACETAMINOPHEN\IBUPROFEN
     Indication: PRODUCT USED FOR UNKNOWN INDICATION
  2. ADVIL DUAL ACTION WITH ACETAMINOPHEN [Suspect]
     Active Substance: ACETAMINOPHEN\IBUPROFEN
     Indication: SUNBURN
     Dosage: UNK

REACTIONS (1)
  - Drug effective for unapproved indication [Unknown]
